FAERS Safety Report 8909183 (Version 1)
Quarter: 2012Q4

REPORT INFORMATION
  Report Type: Spontaneous
  Country: US (occurrence: None)
  Receive Date: 20121113
  Receipt Date: 20121113
  Transmission Date: 20130627
  Serious: No
  Sender: FDA-Public Use
  Company Number: None

PATIENT
  Age: 75 Year
  Sex: Male

DRUGS (19)
  1. CEFOXITIN [Suspect]
     Route: 042
     Dates: start: 20110104, end: 20110104
  2. DESFLURANE [Suspect]
     Dates: start: 20110104, end: 20110104
  3. LOVASTATIN [Concomitant]
  4. AMBIEN [Concomitant]
  5. HYZAAR [Concomitant]
  6. CITALOPRAM [Concomitant]
  7. FENTANYL [Concomitant]
  8. LUNISOLIDE [Concomitant]
  9. ROMORPHONE [Concomitant]
  10. ROMORPHONE [Concomitant]
  11. LOSARTAN POTASSIUM W/HYDROCHLOROTHIAZIDE [Concomitant]
  12. LOVASTATIN [Concomitant]
  13. PARACETAMOL [Concomitant]
  14. POTASSIUM CHLORIDE [Concomitant]
  15. PROPOFOL [Concomitant]
  16. SILDENAFIL [Concomitant]
  17. TUSSIONEX PENNKINETIC [Concomitant]
  18. VECURONIUM [Concomitant]
  19. ZOLPIDEM [Concomitant]

REACTIONS (7)
  - Jaundice [None]
  - Blood alkaline phosphatase increased [None]
  - Alanine aminotransferase increased [None]
  - Aspartate aminotransferase increased [None]
  - Abdominal abscess [None]
  - Post procedural complication [None]
  - Drug-induced liver injury [None]
